FAERS Safety Report 22382832 (Version 2)
Quarter: 2023Q2

REPORT INFORMATION
  Report Type: Spontaneous
  Country: US (occurrence: US)
  Receive Date: 20230530
  Receipt Date: 20230620
  Transmission Date: 20230722
  Serious: Yes (Life-Threatening, Hospitalization)
  Sender: FDA-Public Use
  Company Number: US-MYLANLABS-2023M1056064

PATIENT
  Age: 54 Year
  Sex: Female

DRUGS (3)
  1. FENTANYL [Suspect]
     Active Substance: FENTANYL
     Indication: Product used for unknown indication
     Dosage: UNK
     Route: 065
  2. NALOXONE [Suspect]
     Active Substance: NALOXONE
     Indication: Toxicity to various agents
     Dosage: UNK
     Route: 065
  3. NALOXONE [Suspect]
     Active Substance: NALOXONE
     Indication: Overdose

REACTIONS (5)
  - Overdose [Recovering/Resolving]
  - Toxicity to various agents [Recovering/Resolving]
  - CHANTER syndrome [Recovering/Resolving]
  - Encephalopathy [Unknown]
  - Drug ineffective [Unknown]
